FAERS Safety Report 16359024 (Version 2)
Quarter: 2019Q2

REPORT INFORMATION
  Report Type: Spontaneous
  Country: US (occurrence: US)
  Receive Date: 20190527
  Receipt Date: 20190530
  Transmission Date: 20190711
  Serious: No
  Sender: FDA-Public Use
  Company Number: US-SA-2019SA134429

PATIENT
  Age: 46 Year
  Sex: Female

DRUGS (1)
  1. AUBAGIO [Suspect]
     Active Substance: TERIFLUNOMIDE
     Indication: MULTIPLE SCLEROSIS
     Dosage: 14 MG, QD
     Route: 048
     Dates: start: 20150520

REACTIONS (7)
  - Weight decreased [Unknown]
  - Nausea [Unknown]
  - Chromaturia [Unknown]
  - Unevaluable event [Unknown]
  - Vomiting [Unknown]
  - Decreased appetite [Unknown]
  - Libido decreased [Unknown]

NARRATIVE: CASE EVENT DATE: 201505
